FAERS Safety Report 11727470 (Version 1)
Quarter: 2015Q4

REPORT INFORMATION
  Report Type: Spontaneous
  Country: CH (occurrence: GB)
  Receive Date: 20151112
  Receipt Date: 20151112
  Transmission Date: 20160304
  Serious: Yes (Other)
  Sender: FDA-Public Use
  Company Number: CH-LPDUSPRD-20150885

PATIENT

DRUGS (1)
  1. FERINJECT [Suspect]
     Active Substance: FERRIC CARBOXYMALTOSE
     Dosage: 1500 MG
     Route: 064
     Dates: start: 20151011

REACTIONS (2)
  - Foetal exposure during pregnancy [Unknown]
  - Bradycardia foetal [Unknown]

NARRATIVE: CASE EVENT DATE: 20151011
